FAERS Safety Report 4886534-4 (Version None)
Quarter: 2005Q4

REPORT INFORMATION
  Report Type: 
  Country: None (occurrence: None)
  Receive Date: 20051220
  Receipt Date: 20050429
  Transmission Date: 20060501
  Serious: Yes (Other)
  Sender: FDA-Public Use
  Company Number: HQWYE460002MAY05

PATIENT
  Sex: Female

DRUGS (2)
  1. EFFEXOR XR [Suspect]
     Indication: DEPRESSION
     Dosage: 75 MG 1X PER 1 DAY
  2. EFFEXOR XR [Suspect]
     Indication: SOCIAL PHOBIA
     Dosage: 75 MG 1X PER 1 DAY

REACTIONS (3)
  - BLOOD PRESSURE INCREASED [None]
  - NAUSEA [None]
  - VOMITING [None]
